FAERS Safety Report 8871954 (Version 3)
Quarter: 2012Q4

REPORT INFORMATION
  Report Type: 
  Country: CA (occurrence: CA)
  Receive Date: 20121029
  Receipt Date: 20121226
  Transmission Date: 20130627
  Serious: Yes (Other)
  Sender: FDA-Public Use
  Company Number: PHHY2012CA068432

PATIENT
  Age: 66 Year
  Sex: Female

DRUGS (1)
  1. SANDOSTATIN LAR [Suspect]
     Indication: MULTIPLE ENDOCRINE ADENOMATOSIS TYPE I
     Dosage: 30 mg once a month
     Route: 030
     Dates: start: 20120726

REACTIONS (6)
  - Blood pressure diastolic decreased [Unknown]
  - Blood glucose increased [Unknown]
  - Arthralgia [Recovering/Resolving]
  - Gait disturbance [Unknown]
  - Blood pressure systolic increased [Unknown]
  - Drug ineffective [Unknown]
